FAERS Safety Report 7389658-5 (Version None)
Quarter: 2011Q1

REPORT INFORMATION
  Report Type: 
  Country: None (occurrence: None)
  Receive Date: 20110325
  Receipt Date: 20110318
  Transmission Date: 20110831
  Serious: Yes (Life-Threatening, Hospitalization)
  Sender: FDA-Public Use
  Company Number: GER/UKI/09/0000331

PATIENT
  Age: 77 Year
  Sex: Female

DRUGS (9)
  1. CIPROFLOXACIN [Suspect]
     Indication: URINARY TRACT INFECTION
     Dosage: 2 DOSAGE FORMS, ORAL
     Route: 048
  2. ACETYLSALICYLIC ACID(ACETYLSALICYLIC ACID) [Concomitant]
  3. FUROSEMIDE [Concomitant]
  4. SIMVASTATIN [Suspect]
     Indication: PRODUCT USED FOR UNKNOWN INDICATION
     Dosage: 40 MG, 1 IN 1 D
  5. ISOSORBIDE MONONITRATE [Concomitant]
  6. PINDOLOL [Concomitant]
  7. CIMETIDINE [Concomitant]
  8. LEVOTHYROXINE (LEVOTHYROXINE) [Concomitant]
  9. NICORANDIL (NICORANDIL) [Concomitant]

REACTIONS (5)
  - RHABDOMYOLYSIS [None]
  - URINARY TRACT INFECTION [None]
  - DRUG INTERACTION [None]
  - BLOOD PRESSURE SYSTOLIC INCREASED [None]
  - DYSSTASIA [None]
